FAERS Safety Report 10370683 (Version 3)
Quarter: 2015Q2

REPORT INFORMATION
  Report Type: Spontaneous
  Country: US (occurrence: US)
  Receive Date: 20140808
  Receipt Date: 20150416
  Transmission Date: 20150821
  Serious: Yes (Hospitalization)
  Sender: FDA-Public Use
  Company Number: US-BAYER-2014-117698

PATIENT
  Age: 20 Year
  Sex: Female
  Weight: 68.27 kg

DRUGS (4)
  1. ATENOLOL. [Concomitant]
     Active Substance: ATENOLOL
     Dosage: UNK
     Dates: start: 20090203
  2. DIFFERIN [Concomitant]
     Active Substance: ADAPALENE
     Dosage: 0.3 %, UNK
     Dates: start: 20090112
  3. YAZ [Suspect]
     Active Substance: DROSPIRENONE\ETHINYL ESTRADIOL
     Indication: ACNE
     Dosage: UNK
     Dates: start: 20080827, end: 20090202
  4. ERYTHROMYCIN. [Concomitant]
     Active Substance: ERYTHROMYCIN
     Dosage: UNK
     Dates: start: 20080919, end: 20081119

REACTIONS (9)
  - General physical health deterioration [None]
  - Blindness unilateral [None]
  - Glare [None]
  - Injury [None]
  - Retinal artery thrombosis [None]
  - Emotional distress [None]
  - Pain [None]
  - Visual impairment [None]
  - Anxiety [None]

NARRATIVE: CASE EVENT DATE: 20090202
